FAERS Safety Report 9787236 (Version 1)
Quarter: 2013Q4

REPORT INFORMATION
  Report Type: Report from Study
  Country: US (occurrence: US)
  Receive Date: 20131229
  Receipt Date: 20131229
  Transmission Date: 20140711
  Serious: Yes (Other)
  Sender: FDA-Public Use
  Company Number: US-ROCHE-1324871

PATIENT
  Sex: Male
  Weight: 42.4 kg

DRUGS (7)
  1. NUTROPIN [Suspect]
     Indication: GROWTH HORMONE DEFICIENCY
     Dosage: Q HS, BEDTIME (10MG/2ML SOLUTION)
     Route: 058
     Dates: start: 200809
  2. NUTROPIN [Suspect]
     Dosage: AT BED TIME
     Route: 058
  3. NUTROPIN [Suspect]
     Dosage: EVEY NIGHT
     Route: 058
     Dates: start: 20131014
  4. LUPRON [Concomitant]
     Indication: PRECOCIOUS PUBERTY
     Route: 030
     Dates: start: 201202
  5. ALBUTEROL [Concomitant]
     Indication: WHEEZING
     Dosage: PRN, HFA INHALER
     Route: 055
  6. ALBUTEROL [Concomitant]
     Indication: COUGH
  7. TEV-TROPIN [Concomitant]
     Dosage: NIGHT
     Route: 058

REACTIONS (1)
  - Headache [Unknown]
